FAERS Safety Report 19944999 (Version 1)
Quarter: 2021Q4

REPORT INFORMATION
  Report Type: Spontaneous
  Country: BR (occurrence: BR)
  Receive Date: 20211012
  Receipt Date: 20211012
  Transmission Date: 20220303
  Serious: Yes (Other)
  Sender: FDA-Public Use
  Company Number: BR-COLLEGIUM PHARMACEUTICAL, INC.-2021CGM01095

PATIENT
  Age: 90 Year
  Sex: Male

DRUGS (1)
  1. TAPENTADOL [Suspect]
     Active Substance: TAPENTADOL
     Indication: Neuralgia
     Dosage: 50 MG

REACTIONS (1)
  - Hypertensive crisis [Unknown]
